FAERS Safety Report 23169487 (Version 2)
Quarter: 2023Q4

REPORT INFORMATION
  Report Type: Spontaneous
  Country: EG (occurrence: EG)
  Receive Date: 20231110
  Receipt Date: 20231122
  Transmission Date: 20240110
  Serious: Yes (Other)
  Sender: FDA-Public Use
  Company Number: EG-NOVOPROD-1135154

PATIENT
  Sex: Female
  Weight: 158 kg

DRUGS (1)
  1. ACTRAPID [Suspect]
     Active Substance: INSULIN HUMAN
     Indication: Product used for unknown indication
     Dosage: UNK

REACTIONS (6)
  - Cataract [Unknown]
  - Eye laser surgery [Unknown]
  - Blindness unilateral [Not Recovered/Not Resolved]
  - Diabetic foot [Recovered/Resolved]
  - Hyperglycaemia [Recovered/Resolved]
  - Expired product administered [Unknown]
